FAERS Safety Report 9394226 (Version 1)
Quarter: 2013Q3

REPORT INFORMATION
  Report Type: Report from Study
  Country: DE (occurrence: DE)
  Receive Date: 20130711
  Receipt Date: 20130711
  Transmission Date: 20140515
  Serious: Yes (Other)
  Sender: FDA-Public Use
  Company Number: DE-ROCHE-721576

PATIENT
  Sex: 0

DRUGS (6)
  1. RITUXIMAB [Suspect]
     Indication: B-CELL LYMPHOMA
     Dosage: 375 MG/M2 ON DAY 1,  SINGLE DOSE
     Route: 042
  2. RITUXIMAB [Suspect]
     Dosage: 700 MG/M2 ON DAY 1
     Route: 042
  3. RASBURICASE [Concomitant]
  4. METHOTREXATE [Concomitant]
     Dosage: ON DAYS 1 AND 3 FOR CENTRAL NERVOUS SYSTEM POSITIVE PATIENTS
     Route: 037
  5. CYTARABINE [Concomitant]
     Dosage: ON DAYS 1 AND 3 FOR CENTRAL NERVOUS SYSTEM POSITIVE PATIENTS
     Route: 037
  6. PREDNISOLONE [Concomitant]
     Dosage: ON DAYS 1 AND 3 FOR CENTRAL NERVOUS SYSTEM POSITIVE PATIENTS
     Route: 037

REACTIONS (31)
  - Hypotension [Unknown]
  - Hypertension [Unknown]
  - Blood bilirubin increased [Unknown]
  - Transaminases increased [Unknown]
  - Arrhythmia [Unknown]
  - Neurotoxicity [Unknown]
  - Toxic neuropathy [Unknown]
  - Anaphylactic reaction [Unknown]
  - Hyperglycaemia [Unknown]
  - Bronchospasm [Unknown]
  - Angioedema [Unknown]
  - Oedema peripheral [Unknown]
  - Disseminated intravascular coagulation [Unknown]
  - Hypersensitivity [Recovered/Resolved]
  - Mucosal inflammation [Recovered/Resolved]
  - Infection [Recovered/Resolved]
  - Tumour lysis syndrome [Unknown]
  - General physical health deterioration [Unknown]
  - Fatigue [Unknown]
  - Haemoglobin [Unknown]
  - White blood cell count [Unknown]
  - Granulocyte count [Unknown]
  - Platelet count [Unknown]
  - Nausea [Unknown]
  - Vomiting [Unknown]
  - Diarrhoea [Unknown]
  - Urticaria [Unknown]
  - Headache [Unknown]
  - Arthralgia [Unknown]
  - Myalgia [Unknown]
  - Pain [Unknown]
